FAERS Safety Report 7022379-7 (Version None)
Quarter: 2010Q3

REPORT INFORMATION
  Report Type: 
  Country: None (occurrence: None)
  Receive Date: 20100930
  Receipt Date: 20100922
  Transmission Date: 20110219
  Serious: No
  Sender: FDA-Public Use
  Company Number: US-PFIZER INC-2010121214

PATIENT
  Sex: Male
  Weight: 99.8 kg

DRUGS (6)
  1. TIKOSYN [Suspect]
     Indication: ATRIAL FIBRILLATION
     Dosage: 500 UG, 2X/DAY
     Route: 048
     Dates: start: 20091001
  2. COREG [Concomitant]
     Indication: ATRIAL FIBRILLATION
     Dosage: 25 MG, 2X/DAY
  3. RAMIPRIL [Concomitant]
     Indication: ATRIAL FIBRILLATION
     Dosage: 5 MG, DAILY
  4. FUROSEMIDE [Concomitant]
     Indication: ATRIAL FIBRILLATION
     Dosage: 40 MG, DAILY
  5. POTASSIUM [Concomitant]
     Indication: ATRIAL FIBRILLATION
     Dosage: 20 MEQ, 2X/DAY
  6. ACETYLSALICYLIC ACID SRT [Concomitant]
     Indication: ATRIAL FIBRILLATION
     Dosage: UNK

REACTIONS (1)
  - ATRIAL FIBRILLATION [None]
